FAERS Safety Report 9925243 (Version 1)
Quarter: 2014Q1

REPORT INFORMATION
  Report Type: Spontaneous
  Country: FR (occurrence: FR)
  Receive Date: 20140226
  Receipt Date: 20140226
  Transmission Date: 20141002
  Serious: Yes (Hospitalization, Other)
  Sender: FDA-Public Use
  Company Number: FR-PFIZER INC-2014051932

PATIENT
  Age: 90 Year
  Sex: Female

DRUGS (8)
  1. LYRICA [Suspect]
     Indication: PAIN
     Dosage: 75 MG, 1X/DAY
     Route: 048
  2. LYRICA [Suspect]
     Dosage: 75 MG, 2X/DAY
     Route: 048
     Dates: start: 20140131
  3. SKENAN [Suspect]
     Indication: PAIN
     Dosage: 10 MG, 2X/DAY
     Route: 048
     Dates: start: 20140131
  4. PARACETAMOL [Suspect]
     Indication: PAIN
     Dosage: 1 G, 3X/DAY
     Route: 048
     Dates: start: 20140131
  5. CORTANCYL [Suspect]
     Indication: PAIN
     Dosage: 60 MG, 1X/DAY
     Route: 048
  6. CORTANCYL [Suspect]
     Dosage: 40 MG, UNK
  7. IXPRIM [Concomitant]
     Indication: PAIN
     Dosage: 6 DF, DAILY
  8. ZYLORIC [Concomitant]
     Indication: PAIN
     Dosage: UNK

REACTIONS (6)
  - Somnolence [Unknown]
  - Hallucination, visual [Unknown]
  - Motor dysfunction [Unknown]
  - Urinary retention [Unknown]
  - Pain in extremity [Unknown]
  - Drug ineffective [Unknown]
